FAERS Safety Report 12374291 (Version 1)
Quarter: 2016Q2

REPORT INFORMATION
  Report Type: Spontaneous
  Country: US (occurrence: None)
  Receive Date: 20160516
  Receipt Date: 20160516
  Transmission Date: 20160815
  Serious: Yes (Death, Life-Threatening, Hospitalization, Disabling)
  Sender: FDA-Public Use
  Company Number: None

PATIENT
  Age: 84 Year
  Sex: Male
  Weight: 77.11 kg

DRUGS (7)
  1. NAMENDA XR [Concomitant]
     Active Substance: MEMANTINE HYDROCHLORIDE
  2. CARBIDOPA/LEVO [Concomitant]
  3. NEUPRO [Suspect]
     Active Substance: ROTIGOTINE
     Indication: DEMENTIA
     Dosage: 7 PATCH(ES)  ONCE A DAY  APPLIED TO A SURFACE,USUALLLY THE SKIN
  4. LINZESS [Concomitant]
     Active Substance: LINACLOTIDE
  5. DIVALPROEX EC 500MG [Concomitant]
     Active Substance: DIVALPROEX SODIUM
  6. EXELON PATCH [Concomitant]
     Active Substance: RIVASTIGMINE
  7. NEUPRO [Suspect]
     Active Substance: ROTIGOTINE
     Indication: PARKINSON^S DISEASE
     Dosage: 7 PATCH(ES)  ONCE A DAY  APPLIED TO A SURFACE,USUALLLY THE SKIN

REACTIONS (3)
  - Immobile [None]
  - Activities of daily living impaired [None]
  - Speech disorder [None]

NARRATIVE: CASE EVENT DATE: 20160325
